FAERS Safety Report 5590408-3 (Version None)
Quarter: 2008Q1

REPORT INFORMATION
  Report Type: 
  Country: None (occurrence: None)
  Receive Date: 20080109
  Receipt Date: 20071226
  Transmission Date: 20080703
  Serious: Yes (Death)
  Sender: FDA-Public Use
  Company Number: 2007BI018842

PATIENT
  Sex: Female

DRUGS (2)
  1. ZEVALIN [Suspect]
     Indication: DIFFUSE LARGE B-CELL LYMPHOMA
     Dosage: 33.5 MCI; X1; IV
     Route: 042
     Dates: start: 20070822, end: 20070829
  2. RITUXAN [Concomitant]

REACTIONS (2)
  - NEOPLASM PROGRESSION [None]
  - OFF LABEL USE [None]
